FAERS Safety Report 10163657 (Version 3)
Quarter: 2014Q3

REPORT INFORMATION
  Report Type: Report from Study
  Country: DE (occurrence: NL)
  Receive Date: 20140509
  Receipt Date: 20140714
  Transmission Date: 20150326
  Serious: Yes (Death, Hospitalization)
  Sender: FDA-Public Use
  Company Number: DE-ACTELION-A-US2009-98274

PATIENT
  Age: 86 Year
  Sex: Female

DRUGS (1)
  1. VENTAVIS [Suspect]
     Active Substance: ILOPROST
     Indication: PULMONARY ARTERIAL HYPERTENSION
     Dosage: 6 AMPOULES PER DAY
     Route: 055
     Dates: start: 20091020, end: 20100115

REACTIONS (5)
  - Malaise [Unknown]
  - Oedema [Unknown]
  - Cardiac failure [Unknown]
  - Dyspnoea [Unknown]
  - Pulmonary arterial hypertension [Fatal]

NARRATIVE: CASE EVENT DATE: 200912
